FAERS Safety Report 5803088-6 (Version None)
Quarter: 2008Q3

REPORT INFORMATION
  Report Type: 
  Country: None (occurrence: None)
  Receive Date: 20080708
  Receipt Date: 20080630
  Transmission Date: 20090109
  Serious: Yes (Hospitalization)
  Sender: FDA-Public Use
  Company Number: US-BAYER-200812461BCC

PATIENT
  Age: 23 Year
  Sex: Male
  Weight: 70 kg

DRUGS (1)
  1. ALEVE (CAPLET) [Suspect]
     Indication: PYREXIA
     Dosage: AS USED: 220 MG  UNIT DOSE: 220 MG
     Dates: start: 20080608, end: 20080601

REACTIONS (9)
  - BLISTER [None]
  - EYE SWELLING [None]
  - GENITAL RASH [None]
  - HYPERSENSITIVITY [None]
  - ORAL CANDIDIASIS [None]
  - PENILE BLISTER [None]
  - RASH [None]
  - RASH ERYTHEMATOUS [None]
  - STEVENS-JOHNSON SYNDROME [None]
